FAERS Safety Report 18927552 (Version 2)
Quarter: 2021Q2

REPORT INFORMATION
  Report Type: Report from Study
  Country: US (occurrence: US)
  Receive Date: 20210223
  Receipt Date: 20210408
  Transmission Date: 20210717
  Serious: Yes (Other)
  Sender: FDA-Public Use
  Company Number: US-BIOVITRUM-2020US7358

PATIENT
  Age: 25 Year
  Sex: Male

DRUGS (1)
  1. KINERET [Suspect]
     Active Substance: ANAKINRA
     Indication: MUCKLE-WELLS SYNDROME
     Route: 058
     Dates: start: 20190421

REACTIONS (7)
  - Pruritus [Unknown]
  - Product dose omission issue [Unknown]
  - Emotional disorder [Unknown]
  - Off label use [Not Recovered/Not Resolved]
  - Gastric infection [Unknown]
  - Psoriasis [Unknown]
  - Anxiety [Unknown]

NARRATIVE: CASE EVENT DATE: 20190421
